FAERS Safety Report 7260548-1 (Version None)
Quarter: 2011Q1

REPORT INFORMATION
  Report Type: 
  Country: None (occurrence: None)
  Receive Date: 20110130
  Receipt Date: 20101230
  Transmission Date: 20110831
  Serious: Yes (Hospitalization)
  Sender: FDA-Public Use
  Company Number: US-ABBOTT-11P-163-0694805-00

PATIENT
  Age: 49 Year
  Sex: Female
  Weight: 49.94 kg

DRUGS (4)
  1. HUMIRA [Suspect]
     Indication: COLITIS ULCERATIVE
     Route: 058
     Dates: start: 20090101
  2. XANAX [Concomitant]
     Indication: INSOMNIA
     Route: 048
  3. HUMIRA [Suspect]
     Route: 058
     Dates: start: 20100601, end: 20101207
  4. PREDNISONE [Concomitant]
     Indication: PRODUCT USED FOR UNKNOWN INDICATION
     Route: 048

REACTIONS (7)
  - DIARRHOEA [None]
  - COLITIS ULCERATIVE [None]
  - GENITAL RASH [None]
  - OEDEMA GENITAL [None]
  - SKIN INDURATION [None]
  - HAEMATOCHEZIA [None]
  - DRUG INEFFECTIVE [None]
